FAERS Safety Report 17211709 (Version 1)
Quarter: 2019Q4

REPORT INFORMATION
  Report Type: Report from Study
  Country: None (occurrence: US)
  Receive Date: 20191230
  Receipt Date: 20191230
  Transmission Date: 20200122
  Serious: Yes (Other)
  Sender: FDA-Public Use
  Company Number: US-ABBVIE-19K-163-3208205-00

PATIENT
  Sex: Female

DRUGS (1)
  1. HUMIRA [Suspect]
     Active Substance: ADALIMUMAB
     Indication: CROHN^S DISEASE
     Route: 058

REACTIONS (11)
  - Amnesia [Unknown]
  - Hypertension [Unknown]
  - Spondylitis [Unknown]
  - Neoplasm malignant [Unknown]
  - Headache [Unknown]
  - Blindness unilateral [Unknown]
  - Weight increased [Unknown]
  - Nephrolithiasis [Unknown]
  - Back pain [Unknown]
  - Injection site pain [Unknown]
  - Dyspnoea [Unknown]
